FAERS Safety Report 25131751 (Version 1)
Quarter: 2025Q1

REPORT INFORMATION
  Report Type: Report from Study
  Country: ES (occurrence: ES)
  Receive Date: 20250327
  Receipt Date: 20250327
  Transmission Date: 20250408
  Serious: Yes (Other)
  Sender: RADIUS PHARM
  Company Number: ES-THERAMEX-2025000690

PATIENT
  Sex: Female

DRUGS (1)
  1. ABALOPARATIDE [Suspect]
     Active Substance: ABALOPARATIDE
     Indication: Osteoporosis
     Dosage: DAILY, 1 INYECC/24H
     Route: 058
     Dates: start: 20250307, end: 202503

REACTIONS (7)
  - Blindness [Unknown]
  - Presyncope [Unknown]
  - Blood pressure decreased [Unknown]
  - Discomfort [Unknown]
  - Dizziness [Unknown]
  - Malaise [Unknown]
  - Condition aggravated [Unknown]

NARRATIVE: CASE EVENT DATE: 20250301
